FAERS Safety Report 24458474 (Version 5)
Quarter: 2025Q1

REPORT INFORMATION
  Report Type: Report from Study
  Country: CA (occurrence: CA)
  Receive Date: 20241018
  Receipt Date: 20250204
  Transmission Date: 20250409
  Serious: Yes (Hospitalization)
  Sender: TAKEDA
  Company Number: CA-TAKEDA-2024TUS102455

PATIENT
  Sex: Female

DRUGS (21)
  1. VEDOLIZUMAB [Suspect]
     Active Substance: VEDOLIZUMAB
     Indication: Colitis ulcerative
  2. VEDOLIZUMAB [Suspect]
     Active Substance: VEDOLIZUMAB
  3. VEDOLIZUMAB [Suspect]
     Active Substance: VEDOLIZUMAB
  4. IMODIUM [Concomitant]
     Active Substance: LOPERAMIDE HYDROCHLORIDE
  5. FENOFIBRATE [Concomitant]
     Active Substance: FENOFIBRATE
  6. ALENDRONATE [Concomitant]
     Active Substance: ALENDRONATE SODIUM
  7. FOLIC ACID [Concomitant]
     Active Substance: FOLIC ACID
  8. VITAMIN D [Concomitant]
     Active Substance: VITAMIN D NOS
  9. CALCIUM [Concomitant]
     Active Substance: CALCIUM
  10. DAPAGLIFLOZIN [Concomitant]
     Active Substance: DAPAGLIFLOZIN
  11. METOPROLOL [Concomitant]
     Active Substance: METOPROLOL
  12. ROSUVASTATIN [Concomitant]
     Active Substance: ROSUVASTATIN
  13. METFORMIN [Concomitant]
     Active Substance: METFORMIN HYDROCHLORIDE
  14. RESTORIL [Concomitant]
     Active Substance: TEMAZEPAM
  15. PANTOPRAZOLE [Concomitant]
     Active Substance: PANTOPRAZOLE
  16. PREGABALIN [Concomitant]
     Active Substance: PREGABALIN
  17. LOPERAMIDE [Concomitant]
     Active Substance: LOPERAMIDE
  18. CYCLOBENZAPRINE [Concomitant]
     Active Substance: CYCLOBENZAPRINE
  19. BASAGLAR [Concomitant]
     Active Substance: INSULIN GLARGINE
  20. OZEMPIC [Concomitant]
     Active Substance: SEMAGLUTIDE
  21. OLMESARTAN [Concomitant]
     Active Substance: OLMESARTAN

REACTIONS (6)
  - Gastroenteritis viral [Unknown]
  - Drug ineffective [Unknown]
  - Malaise [Recovering/Resolving]
  - Product dose omission issue [Unknown]
  - Headache [Unknown]
  - Nausea [Unknown]
